FAERS Safety Report 5361234-5 (Version None)
Quarter: 2007Q2

REPORT INFORMATION
  Report Type: 
  Country: None (occurrence: None)
  Receive Date: 20070614
  Receipt Date: 20070529
  Transmission Date: 20071010
  Serious: Yes (Other)
  Sender: FDA-Public Use
  Company Number: 2007VX001526

PATIENT
  Sex: Male

DRUGS (3)
  1. TASMAR [Suspect]
     Dosage: 100 MG;TID;
  2. LEVODOPA (LEVODOPA) [Suspect]
  3. MIRAPIXINE [Suspect]

REACTIONS (1)
  - BLOOD BILIRUBIN INCREASED [None]
